FAERS Safety Report 15133541 (Version 2)
Quarter: 2018Q3

REPORT INFORMATION
  Report Type: Report from Study
  Country: US (occurrence: US)
  Receive Date: 20180712
  Receipt Date: 20180810
  Transmission Date: 20181010
  Serious: Yes (Other)
  Sender: FDA-Public Use
  Company Number: US-TESARO, INC.-US-2018TSO03416

PATIENT
  Sex: Female

DRUGS (2)
  1. ZEJULA [Suspect]
     Active Substance: NIRAPARIB
     Dosage: 200 MG, QD
     Route: 048
  2. ZEJULA [Suspect]
     Active Substance: NIRAPARIB
     Indication: OVARIAN CANCER
     Dosage: 200 MG, QD
     Route: 048
     Dates: start: 20170905

REACTIONS (8)
  - Hepatic lesion [Unknown]
  - Gingival operation [Unknown]
  - Computerised tomogram abnormal [Unknown]
  - Neoplasm progression [Unknown]
  - Carbohydrate antigen 125 increased [Unknown]
  - Intentional underdose [Not Recovered/Not Resolved]
  - Hypersensitivity [Unknown]
  - Abdominal pain upper [Unknown]
